FAERS Safety Report 5115045-6 (Version None)
Quarter: 2006Q3

REPORT INFORMATION
  Report Type: 
  Country: None (occurrence: None)
  Receive Date: 20060922
  Receipt Date: 20060803
  Transmission Date: 20061208
  Serious: Yes (Hospitalization)
  Sender: FDA-Public Use
  Company Number: 2006101170

PATIENT
  Age: 71 Year
  Sex: Female
  Weight: 69.4003 kg

DRUGS (1)
  1. CELEBREX [Suspect]
     Indication: BACK PAIN
     Dosage: 200 MG (200 MG, 1 IN 1 D);
     Dates: start: 20011017

REACTIONS (2)
  - CAROTID ARTERY OCCLUSION [None]
  - CONDITION AGGRAVATED [None]
